FAERS Safety Report 25346305 (Version 1)
Quarter: 2025Q2

REPORT INFORMATION
  Report Type: Other
  Country: US (occurrence: US)
  Receive Date: 20250522
  Receipt Date: 20250522
  Transmission Date: 20250716
  Serious: Yes (Hospitalization, Other)
  Sender: ALVOGEN
  Company Number: US-ALVOGEN-2025098037

PATIENT
  Age: 66 Year
  Sex: Male

DRUGS (6)
  1. FENTANYL [Suspect]
     Active Substance: FENTANYL
     Indication: Product used for unknown indication
  2. HEROIN [Suspect]
     Active Substance: DIAMORPHINE
     Indication: Product used for unknown indication
  3. METHADONE [Suspect]
     Active Substance: METHADONE HYDROCHLORIDE
     Indication: Product used for unknown indication
  4. COCAINE [Suspect]
     Active Substance: COCAINE
     Indication: Product used for unknown indication
  5. DIPHENHYDRAMINE [Suspect]
     Active Substance: DIPHENHYDRAMINE
     Indication: Product used for unknown indication
  6. QUININE [Suspect]
     Active Substance: QUININE
     Indication: Product used for unknown indication

REACTIONS (11)
  - Unresponsive to stimuli [Unknown]
  - Sinus bradycardia [Unknown]
  - Diastolic dysfunction [Unknown]
  - Rhinorrhoea [Unknown]
  - Miosis [Unknown]
  - Somnolence [Unknown]
  - Drug use disorder [Unknown]
  - Drug withdrawal syndrome [Recovering/Resolving]
  - Dizziness [Unknown]
  - Overdose [Unknown]
  - Adulterated product [Unknown]
